FAERS Safety Report 6518191-5 (Version None)
Quarter: 2009Q4

REPORT INFORMATION
  Report Type: 
  Country: None (occurrence: None)
  Receive Date: 20091223
  Receipt Date: 20091223
  Transmission Date: 20100525
  Serious: No
  Sender: FDA-Public Use
  Company Number: None

PATIENT
  Sex: Female

DRUGS (1)
  1. OMEPRAZOLE [Suspect]
     Dosage: TAKE 1 CAPSULE DAILY

REACTIONS (4)
  - DYSPEPSIA [None]
  - ERUCTATION [None]
  - PRODUCT SUBSTITUTION ISSUE [None]
  - REBOUND EFFECT [None]
